FAERS Safety Report 25066318 (Version 1)
Quarter: 2025Q1

REPORT INFORMATION
  Report Type: Spontaneous
  Country: US (occurrence: US)
  Receive Date: 20250312
  Receipt Date: 20250312
  Transmission Date: 20250408
  Serious: Yes (Hospitalization, Other)
  Sender: Haleon PLC
  Company Number: US-HALEON-2232039

PATIENT
  Sex: Female
  Weight: 59.874 kg

DRUGS (13)
  1. PREPARATION H NOS [Suspect]
     Active Substance: UNSPECIFIED INGREDIENT
     Indication: Haemorrhoidal haemorrhage
  2. LEVOTHYROXINE SODIUM [Concomitant]
     Active Substance: LEVOTHYROXINE SODIUM
     Indication: Product used for unknown indication
  3. VITAMIN D2 [Concomitant]
     Active Substance: ERGOCALCIFEROL
     Indication: Product used for unknown indication
  4. ESCITALOPRAM OXALATE [Concomitant]
     Active Substance: ESCITALOPRAM OXALATE
     Indication: Product used for unknown indication
  5. TYLENOL [Concomitant]
     Active Substance: ACETAMINOPHEN
     Indication: Product used for unknown indication
  6. PANTOPRAZOLE SODIUM [Concomitant]
     Active Substance: PANTOPRAZOLE SODIUM
     Indication: Product used for unknown indication
  7. LASIX [Concomitant]
     Active Substance: FUROSEMIDE
     Indication: Product used for unknown indication
  8. PRAVASTATIN SODIUM [Concomitant]
     Active Substance: PRAVASTATIN SODIUM
     Indication: Product used for unknown indication
  9. BUSPIRONE HCL [Concomitant]
     Active Substance: BUSPIRONE HYDROCHLORIDE
     Indication: Product used for unknown indication
  10. GABAPENTIN [Concomitant]
     Active Substance: GABAPENTIN
     Indication: Product used for unknown indication
  11. METOPROLOL SUCCINATE [Concomitant]
     Active Substance: METOPROLOL SUCCINATE
     Indication: Product used for unknown indication
  12. AMLODIPINE BESYLATE [Concomitant]
     Active Substance: AMLODIPINE BESYLATE
     Indication: Product used for unknown indication
  13. IBUPROFEN [Concomitant]
     Active Substance: IBUPROFEN
     Indication: Product used for unknown indication

REACTIONS (21)
  - Pulmonary hypertension [Unknown]
  - Nausea [Unknown]
  - Interstitial lung disease [Unknown]
  - Vomiting [Recovered/Resolved]
  - Pneumonia [Unknown]
  - Hypotension [Unknown]
  - Blood potassium decreased [Unknown]
  - Throat irritation [Unknown]
  - Pain in jaw [Unknown]
  - Defaecation urgency [Unknown]
  - Productive cough [Unknown]
  - Haemorrhoidal haemorrhage [Unknown]
  - Headache [Unknown]
  - Cough [Recovering/Resolving]
  - Feeling abnormal [Unknown]
  - Therapy non-responder [Unknown]
  - Weight increased [Unknown]
  - Rhinorrhoea [Unknown]
  - Dyspnoea [Unknown]
  - Dry throat [Unknown]
  - Blood iron decreased [Unknown]
